FAERS Safety Report 4792467-4 (Version None)
Quarter: 2005Q4

REPORT INFORMATION
  Report Type: 
  Country: None (occurrence: None)
  Receive Date: 20051010
  Receipt Date: 20050906
  Transmission Date: 20060501
  Serious: Yes (Disabling)
  Sender: FDA-Public Use
  Company Number: JP-JPN-A20052120

PATIENT
  Age: 81 Year
  Sex: Female
  Weight: 68 kg

DRUGS (9)
  1. PAXIL [Suspect]
     Indication: DEPRESSION
     Route: 048
     Dates: start: 20050427, end: 20050522
  2. BUFFERIN [Concomitant]
     Indication: CEREBRAL INFARCTION
     Dosage: 81MG PER DAY
     Route: 048
     Dates: start: 20050308
  3. NORVASC [Concomitant]
     Indication: HYPERTENSION
     Route: 048
     Dates: start: 20050318, end: 20050522
  4. RADICUT [Concomitant]
     Indication: CEREBRAL INFARCTION
     Dosage: 60MG PER DAY
     Route: 042
     Dates: start: 20050304, end: 20050327
  5. GASTER D [Concomitant]
     Indication: REFLUX OESOPHAGITIS
     Dosage: 20MG PER DAY
     Route: 048
     Dates: start: 20050428, end: 20050522
  6. NITRAZEPAM [Concomitant]
     Indication: INSOMNIA
     Dosage: 10MG PER DAY
     Route: 048
     Dates: start: 20050721
  7. LEBENIN [Concomitant]
     Indication: DIARRHOEA
     Dosage: 3G PER DAY
     Route: 048
  8. LOPEMIN [Concomitant]
     Dosage: 2MG PER DAY
     Route: 048
  9. ACIDLESS [Concomitant]
     Dosage: 15ML PER DAY
     Route: 048
     Dates: start: 20050428, end: 20050522

REACTIONS (7)
  - DEMENTIA [None]
  - DEPRESSED LEVEL OF CONSCIOUSNESS [None]
  - HYPONATRAEMIA [None]
  - INAPPROPRIATE ANTIDIURETIC HORMONE SECRETION [None]
  - INSOMNIA [None]
  - MUSCULAR WEAKNESS [None]
  - SOLILOQUY [None]
